FAERS Safety Report 26028259 (Version 1)
Quarter: 2025Q4

REPORT INFORMATION
  Report Type: Spontaneous
  Country: US (occurrence: US)
  Receive Date: 20251111
  Receipt Date: 20251111
  Transmission Date: 20260118
  Serious: No
  Sender: Alora Pharma
  Company Number: US-ACELLA PHARMACEUTICALS, LLC-2025ALO00034

PATIENT
  Age: 62 Year
  Sex: Male
  Weight: 99.773 kg

DRUGS (8)
  1. CICLOPIROX [Suspect]
     Active Substance: CICLOPIROX
     Indication: Onychomycosis
     Dosage: UNK (TWO BRUSH LOADS PER TOENAIL), 1X/DAY
     Route: 061
     Dates: start: 20250107, end: 202501
  2. CICLOPIROX [Suspect]
     Active Substance: CICLOPIROX
     Dosage: UNK  (TWO BRUSH LOADS PER TOENAIL), 1X/DAY
     Route: 061
     Dates: start: 20250107, end: 202501
  3. CICLOPIROX [Suspect]
     Active Substance: CICLOPIROX
     Dosage: UNK (TWO BRUSH LOADS PER TOENAIL), EVERY 48 HOURS
     Route: 061
     Dates: start: 20250128
  4. LEVETIRACETAM [Concomitant]
     Active Substance: LEVETIRACETAM
  5. VITAMIN E [Concomitant]
     Active Substance: .ALPHA.-TOCOPHEROL
  6. VITAMIN D NOS [Concomitant]
     Active Substance: CHOLECALCIFEROL\ERGOCALCIFEROL
  7. ZINC [Concomitant]
     Active Substance: ZINC
  8. VITAMINS NOS [Concomitant]
     Active Substance: VITAMINS

REACTIONS (7)
  - Onychoclasis [Recovered/Resolved]
  - Nail bed bleeding [Not Recovered/Not Resolved]
  - Nail disorder [Not Recovered/Not Resolved]
  - Wrong technique in product usage process [Not Recovered/Not Resolved]
  - Intentional product use issue [Not Recovered/Not Resolved]
  - Liquid product physical issue [Unknown]
  - Product use complaint [Not Recovered/Not Resolved]

NARRATIVE: CASE EVENT DATE: 20250101
